FAERS Safety Report 4485083-5 (Version None)
Quarter: 2004Q4

REPORT INFORMATION
  Report Type: 
  Country: None (occurrence: None)
  Receive Date: 20041021
  Receipt Date: 20041021
  Transmission Date: 20050328
  Serious: Yes (Other)
  Sender: FDA-Public Use
  Company Number: None

PATIENT
  Age: 36 Year
  Sex: Female
  Weight: 97.5234 kg

DRUGS (5)
  1. REMERON [Suspect]
     Indication: GENERALISED ANXIETY DISORDER
     Dosage: 7.5 MG DAILY ORAL
     Route: 048
     Dates: start: 20030517, end: 20041020
  2. PULMICORT [Concomitant]
  3. SINGULAIR [Concomitant]
  4. NEXIUM [Concomitant]
  5. VALIUM [Concomitant]

REACTIONS (5)
  - CONDUCTION DISORDER [None]
  - DRUG WITHDRAWAL SYNDROME [None]
  - FLATULENCE [None]
  - MIGRAINE [None]
  - NERVOUS SYSTEM DISORDER [None]
